FAERS Safety Report 4482352-X (Version None)
Quarter: 2004Q4

REPORT INFORMATION
  Report Type: 
  Country: None (occurrence: None)
  Receive Date: 20041022
  Receipt Date: 20041011
  Transmission Date: 20050328
  Serious: Yes (Death)
  Sender: FDA-Public Use
  Company Number: US-ROCHE-383125

PATIENT
  Age: 57 Year
  Sex: Male

DRUGS (2)
  1. PEGASYS [Suspect]
     Indication: HEPATITIS C
     Route: 065
  2. COPEGUS [Suspect]
     Indication: HEPATITIS C
     Route: 048

REACTIONS (13)
  - ANAEMIA [None]
  - HAEMATEMESIS [None]
  - HAEMORRHAGE [None]
  - HYPOVOLAEMIA [None]
  - NEUTROPHIL COUNT DECREASED [None]
  - PAIN [None]
  - PLATELET COUNT DECREASED [None]
  - PNEUMONIA [None]
  - PYREXIA [None]
  - RENAL FAILURE [None]
  - SEPTIC SHOCK [None]
  - VARICOSE VEIN [None]
  - WHITE BLOOD CELL COUNT DECREASED [None]
